FAERS Safety Report 10220512 (Version 2)
Quarter: 2014Q2

REPORT INFORMATION
  Report Type: Spontaneous
  Country: US (occurrence: US)
  Receive Date: 20140606
  Receipt Date: 20140606
  Transmission Date: 20141212
  Serious: No
  Sender: FDA-Public Use
  Company Number: US-ASTRAZENECA-2014SE27433

PATIENT
  Age: 58 Year
  Sex: Male
  Weight: 81.6 kg

DRUGS (4)
  1. PULMICORT FLEXHALER [Suspect]
     Route: 055
  2. ALBUTEROL INHALER [Concomitant]
  3. NEBULIZED ALBUTEROL [Concomitant]
  4. ADVAIR [Concomitant]

REACTIONS (2)
  - Chronic obstructive pulmonary disease [Unknown]
  - Circumstance or information capable of leading to medication error [Unknown]
